FAERS Safety Report 23382308 (Version 2)
Quarter: 2024Q3

REPORT INFORMATION
  Report Type: Report from Study
  Country: IT (occurrence: IT)
  Receive Date: 20240109
  Receipt Date: 20240710
  Transmission Date: 20241017
  Serious: Yes (Hospitalization, Other)
  Sender: BAXTER
  Company Number: None

PATIENT
  Age: 14 Year
  Sex: Female
  Weight: 39 kg

DRUGS (4)
  1. IFOSFAMIDE [Suspect]
     Active Substance: IFOSFAMIDE
     Indication: Ewing^s sarcoma
     Dosage: 4134 MG/DAY
     Route: 042
     Dates: start: 20231211, end: 20231212
  2. DOXORUBICIN HYDROCHLORIDE [Suspect]
     Active Substance: DOXORUBICIN HYDROCHLORIDE
     Indication: Ewing^s sarcoma
     Dosage: 41 MG
     Route: 042
     Dates: start: 20231211, end: 20231212
  3. VINCRISTINE [Suspect]
     Active Substance: VINCRISTINE
     Indication: Ewing^s sarcoma
     Dosage: 2MG/DAY ON DATE 11 AND 18DEC2023
     Route: 042
     Dates: start: 20231211, end: 20231218
  4. COSMEGEN [Suspect]
     Active Substance: DACTINOMYCIN
     Indication: Ewing^s sarcoma
     Dosage: 2 MG
     Route: 042
     Dates: start: 20231211, end: 20231211

REACTIONS (4)
  - Hyperpyrexia [Recovered/Resolved]
  - Pancytopenia [Recovered/Resolved]
  - Neutropenia [Recovered/Resolved]
  - Alopecia [Not Recovered/Not Resolved]

NARRATIVE: CASE EVENT DATE: 20231221
